FAERS Safety Report 10910038 (Version 1)
Quarter: 2015Q1

REPORT INFORMATION
  Report Type: Spontaneous
  Country: US (occurrence: US)
  Receive Date: 20150312
  Receipt Date: 20150312
  Transmission Date: 20150721
  Serious: No
  Sender: FDA-Public Use
  Company Number: US-SA-2014SA089810

PATIENT
  Age: 65 Year
  Sex: Female

DRUGS (3)
  1. NASACORT ALLERGY 24HR [Suspect]
     Active Substance: TRIAMCINOLONE ACETONIDE
     Indication: MULTIPLE ALLERGIES
     Dosage: DOSE- 2 SPRAYS EACH NOSTRIL
     Route: 045
  2. ALL OTHER THERAPEUTIC PRODUCTS [Concomitant]
     Active Substance: UNSPECIFIED INGREDIENT
     Indication: MULTIPLE ALLERGIES
  3. DEXTROMETHORPHAN/GUAIFENESIN [Suspect]
     Active Substance: DEXTROMETHORPHAN\GUAIFENESIN
     Indication: MULTIPLE ALLERGIES
     Route: 065

REACTIONS (1)
  - Diarrhoea [Not Recovered/Not Resolved]
